FAERS Safety Report 7930557-5 (Version None)
Quarter: 2011Q4

REPORT INFORMATION
  Report Type: 
  Country: None (occurrence: None)
  Receive Date: 20111121
  Receipt Date: 20111115
  Transmission Date: 20120403
  Serious: Yes (Disabling)
  Sender: FDA-Public Use
  Company Number: US-CELGENEUS-163-21880-11091282

PATIENT
  Sex: Female

DRUGS (22)
  1. OMEPRAZOLE [Concomitant]
     Dosage: 10 MILLIGRAM
     Route: 048
  2. ASCORBIC ACID [Concomitant]
     Dosage: 500 MILLIGRAM
     Route: 048
  3. DEXAMETHASONE [Concomitant]
     Dosage: 4 MILLIGRAM
     Route: 065
  4. VALACYCLOVIR [Concomitant]
     Dosage: 500 MILLIGRAM
     Route: 048
  5. SOLADRONIC ACID [Concomitant]
     Route: 041
  6. MULTI-VITAMINS [Concomitant]
     Dosage: 1
     Route: 048
  7. POTASSIUM CHLORIDE [Concomitant]
     Dosage: 20 MILLIGRAM
     Route: 065
  8. POTASSIUM CHLORIDE [Concomitant]
     Dosage: 1
     Route: 048
  9. CALCIUM ACETATE [Concomitant]
     Dosage: 1500 MILLIGRAM
     Route: 065
  10. ATENOLOL [Concomitant]
     Dosage: 50 MILLIGRAM
     Route: 048
  11. AMLODIPINE BESYLATE [Concomitant]
     Route: 048
  12. LOPERIMIDE [Concomitant]
     Dosage: 2 MILLIGRAM
     Route: 048
  13. BISMUTH TRIBROM-PETROLATUM [Concomitant]
     Route: 061
  14. NORVASC [Concomitant]
     Dosage: 5 MILLIGRAM
     Route: 048
  15. ZOMETA [Concomitant]
     Dosage: 4MG/5ML
     Route: 041
  16. DARBOPOETIN-ALFA-POLYSORBATE [Concomitant]
     Route: 050
  17. REVLIMID [Suspect]
     Indication: MULTIPLE MYELOMA
     Dosage: 5 MILLIGRAM
     Route: 048
     Dates: start: 20090201
  18. ANALGESICS [Concomitant]
     Route: 065
  19. ACETAMINOPHEN [Concomitant]
     Dosage: 1
     Route: 048
  20. VICODIN [Concomitant]
     Route: 048
  21. ARANESP [Concomitant]
     Dosage: 300MCG/0.6ML
     Route: 050
  22. ASPIRIN [Concomitant]
     Dosage: 81 MILLIGRAM
     Route: 048

REACTIONS (2)
  - MOBILITY DECREASED [None]
  - PAIN IN EXTREMITY [None]
